FAERS Safety Report 8057014-2 (Version None)
Quarter: 2012Q1

REPORT INFORMATION
  Report Type: 
  Country: None (occurrence: None)
  Receive Date: 20120119
  Receipt Date: 20120118
  Transmission Date: 20120608
  Serious: No
  Sender: FDA-Public Use
  Company Number: US-B.I. PHARMACEUTICALS,INC./RIDGEFIELD-2012-BP-00975BP

PATIENT
  Age: 78 Year
  Sex: Female

DRUGS (7)
  1. METOPROLOL TARTRATE [Concomitant]
  2. LISINOPRIL [Concomitant]
  3. ARICEPT [Concomitant]
     Indication: MEMORY IMPAIRMENT
  4. DIGOXIN [Concomitant]
  5. ASPIRIN [Concomitant]
  6. ZOCOR [Concomitant]
  7. PRADAXA [Suspect]
     Indication: ATRIAL FIBRILLATION
     Dosage: 300 MG
     Route: 048
     Dates: start: 20111001

REACTIONS (5)
  - SWELLING FACE [None]
  - CONTUSION [None]
  - DYSPEPSIA [None]
  - RHINITIS [None]
  - RECTAL HAEMORRHAGE [None]
